FAERS Safety Report 21918724 (Version 1)
Quarter: 2023Q1

REPORT INFORMATION
  Report Type: Spontaneous
  Country: DE (occurrence: DE)
  Receive Date: 20230127
  Receipt Date: 20230127
  Transmission Date: 20230418
  Serious: Yes (Other)
  Sender: FDA-Public Use
  Company Number: DE-MYLANLABS-2023M1004285

PATIENT
  Age: 74 Year
  Sex: Male

DRUGS (1)
  1. LATANOPROST [Interacting]
     Active Substance: LATANOPROST
     Indication: Product used for unknown indication
     Dosage: 50 UG/ML, QD
     Route: 065
     Dates: start: 2022

REACTIONS (2)
  - Erectile dysfunction [Unknown]
  - Drug interaction [Unknown]
